FAERS Safety Report 6552086-6 (Version None)
Quarter: 2010Q1

REPORT INFORMATION
  Report Type: 
  Country: None (occurrence: None)
  Receive Date: 20100126
  Receipt Date: 20091227
  Transmission Date: 20100710
  Serious: No
  Sender: FDA-Public Use
  Company Number: US-BAYER-201010132BCC

PATIENT
  Age: 78 Year
  Sex: Female
  Weight: 68 kg

DRUGS (5)
  1. ALEVE (CAPLET) [Suspect]
     Indication: ARTHRITIS
     Dosage: AS USED: 440/220 MG  UNIT DOSE: 220 MG
     Route: 048
     Dates: start: 20091201, end: 20091201
  2. ALEVE (CAPLET) [Suspect]
     Dosage: TOTAL DAILY DOSE: 440 MG  UNIT DOSE: 220 MG
     Route: 048
     Dates: start: 20091201, end: 20091226
  3. TYLENOL W/ CODEINE [Concomitant]
     Route: 065
  4. VALIUM [Concomitant]
     Route: 065
  5. AVALIDE [Concomitant]
     Route: 065

REACTIONS (1)
  - NOCTURIA [None]
